FAERS Safety Report 5920936-X (Version None)
Quarter: 2008Q4

REPORT INFORMATION
  Report Type: 
  Country: None (occurrence: None)
  Receive Date: 20081016
  Receipt Date: 20081006
  Transmission Date: 20090506
  Serious: Yes (Other)
  Sender: FDA-Public Use
  Company Number: US-JNJFOC-20081002013

PATIENT
  Age: 55 Year
  Sex: Female

DRUGS (1)
  1. DOXIL [Suspect]
     Indication: MALIGNANT PERITONEAL NEOPLASM
     Route: 042

REACTIONS (9)
  - DIZZINESS [None]
  - DYSPNOEA [None]
  - HYPERHIDROSIS [None]
  - HYPERSENSITIVITY [None]
  - HYPOTENSION [None]
  - NAUSEA [None]
  - TACHYCARDIA [None]
  - TINNITUS [None]
  - VISION BLURRED [None]
